FAERS Safety Report 10227144 (Version 2)
Quarter: 2014Q4

REPORT INFORMATION
  Report Type: Spontaneous
  Country: ES (occurrence: ES)
  Receive Date: 20140610
  Receipt Date: 20141006
  Transmission Date: 20150528
  Serious: Yes (Hospitalization)
  Sender: FDA-Public Use
  Company Number: ES-MERCK-1406ESP003214

PATIENT
  Age: 85 Year
  Sex: Male

DRUGS (6)
  1. SINEMET [Suspect]
     Active Substance: CARBIDOPA\LEVODOPA
     Indication: PARKINSON^S DISEASE
     Dosage: 1 TABLET (25 MG/250 MG) BEFORE BREAKFAST AND LUNCH AND HALF A TABLET BEFORE DINNER. APX 62.5MG/625MG
     Dates: start: 201406, end: 201406
  2. SINEMET [Suspect]
     Active Substance: CARBIDOPA\LEVODOPA
     Dosage: 1 TABLET (25 MG/250 MG), EVERY 8 HOUR (TID), VIA NASOGASTRIC TUBE
     Dates: start: 2002
  3. DESLORATADINE. [Concomitant]
     Active Substance: DESLORATADINE
     Indication: HYPERSENSITIVITY
     Dosage: 5 MG, QD, VIA NASOGASTRIC TUBE
     Route: 048
  4. NEXIUM [Concomitant]
     Active Substance: ESOMEPRAZOLE MAGNESIUM
     Indication: PROPHYLAXIS AGAINST GASTROINTESTINAL ULCER
     Dosage: 40 MG, QD, VIA NASOGASTRIC TUBE
  5. ADIRO [Concomitant]
     Active Substance: ASPIRIN
     Dosage: 100 MG, QD, VIA NASOGASTRIC TUBE
  6. AZILECT [Concomitant]
     Active Substance: RASAGILINE MESYLATE
     Indication: PARKINSON^S DISEASE
     Dosage: 1 MG, QD, VIA NASOGASTRIC TUBE

REACTIONS (16)
  - Nervousness [Not Recovered/Not Resolved]
  - Wrong technique in drug usage process [Unknown]
  - Libido increased [Not Recovered/Not Resolved]
  - Constipation [Recovered/Resolved]
  - Depressed mood [Not Recovered/Not Resolved]
  - Respiratory tract infection [Recovered/Resolved]
  - Agitation [Not Recovered/Not Resolved]
  - Tension [Not Recovered/Not Resolved]
  - Disturbance in social behaviour [Not Recovered/Not Resolved]
  - Diarrhoea [Recovered/Resolved]
  - Respiratory tract infection [Recovered/Resolved]
  - Restlessness [Not Recovered/Not Resolved]
  - Hyperhidrosis [Not Recovered/Not Resolved]
  - Dyspnoea [Not Recovered/Not Resolved]
  - Fatigue [Not Recovered/Not Resolved]
  - Incorrect route of drug administration [Unknown]

NARRATIVE: CASE EVENT DATE: 2002
